FAERS Safety Report 7340572-0 (Version None)
Quarter: 2011Q1

REPORT INFORMATION
  Report Type: 
  Country: None (occurrence: None)
  Receive Date: 20110309
  Receipt Date: 20110224
  Transmission Date: 20110831
  Serious: Yes (Hospitalization)
  Sender: FDA-Public Use
  Company Number: PHHY2010AT62410

PATIENT
  Sex: Male

DRUGS (2)
  1. PAIN KILLER [Concomitant]
  2. ACLASTA [Suspect]
     Indication: OSTEOPOROSIS
     Dosage: 5 MG, UNK
     Route: 042
     Dates: start: 20100831

REACTIONS (25)
  - PYREXIA [None]
  - VISUAL IMPAIRMENT [None]
  - FATIGUE [None]
  - OCULAR HYPERAEMIA [None]
  - ASTHENIA [None]
  - HYPERHIDROSIS [None]
  - SWELLING FACE [None]
  - VERTIGO [None]
  - HERPES ZOSTER OPHTHALMIC [None]
  - LACRIMATION INCREASED [None]
  - INSOMNIA [None]
  - DIPLOPIA [None]
  - EYELID OEDEMA [None]
  - HEADACHE [None]
  - NEURALGIA [None]
  - VISION BLURRED [None]
  - MALAISE [None]
  - PAIN [None]
  - RHINITIS [None]
  - QUALITY OF LIFE DECREASED [None]
  - EYE PAIN [None]
  - PHOTOPHOBIA [None]
  - CONJUNCTIVAL DISORDER [None]
  - EYE INFLAMMATION [None]
  - DERMATITIS [None]
